FAERS Safety Report 21584199 (Version 1)
Quarter: 2022Q4

REPORT INFORMATION
  Report Type: Spontaneous
  Country: ES (occurrence: ES)
  Receive Date: 20221111
  Receipt Date: 20221111
  Transmission Date: 20230113
  Serious: Yes (Hospitalization)
  Sender: FDA-Public Use
  Company Number: None

PATIENT
  Age: 75 Year
  Sex: Female

DRUGS (6)
  1. BORTEZOMIB [Suspect]
     Active Substance: BORTEZOMIB
     Indication: Plasma cell myeloma
     Dosage: 2.08 MG EVERY 28 DAYS, THERAPY END DATE: NASK, BORTEZOMIB (2928A)
     Route: 065
     Dates: start: 20210615
  2. OMEPRAZOL CINFA [Concomitant]
     Indication: Anaemia
     Dosage: 20.0 MG A-DE, OMEPRAZOL CINFA 20 MG GASTRO-RESISTANT CAPSULES, HARD EFG, 56 CAPSULES (BOTTLE)
     Dates: start: 20210619
  3. CALCIUM CARBONATE\CHOLECALCIFEROL [Concomitant]
     Active Substance: CALCIUM CARBONATE\CHOLECALCIFEROL
     Indication: Plasma cell myeloma
     Dosage: 1.0 COMP EC, IDEOS 500 MG/400 IU, 30 TABLETS
     Dates: start: 20211011
  4. LAMIVUDINE [Concomitant]
     Active Substance: LAMIVUDINE
     Indication: Hepatitis B
     Dosage: 100.0MG C/24H, FORM STRENGTH: 100 MG, 28 TABLETS
     Dates: start: 20210619
  5. MANIDIPINE CINFA [Concomitant]
     Indication: Essential hypertension
     Dosage: 10.0MG DE, MANIDIPINE CINFA 10 MG TABLETS EFG, 28 TABLETS
     Dates: start: 20210619
  6. ACTRAPID [Concomitant]
     Active Substance: INSULIN HUMAN
     Indication: Plasma cell myeloma
     Dosage: 6.0 IU DECOCE, FORM STRENGTH : 100 IU/ML, 5 PRE-FILLED PENS OF 3 ML
     Dates: start: 20210618

REACTIONS (1)
  - Deep vein thrombosis [Recovered/Resolved]

NARRATIVE: CASE EVENT DATE: 20211105
